FAERS Safety Report 10620132 (Version 1)
Quarter: 2014Q4

REPORT INFORMATION
  Report Type: Spontaneous
  Country: DE (occurrence: DE)
  Receive Date: 20141202
  Receipt Date: 20141202
  Transmission Date: 20150529
  Serious: Yes (Other)
  Sender: FDA-Public Use
  Company Number: DE-ACTAVIS-2014-25868

PATIENT
  Sex: Female

DRUGS (1)
  1. KENTERA (WATSON LABORATORIES) [Suspect]
     Active Substance: OXYBUTYNIN
     Indication: PRODUCT USED FOR UNKNOWN INDICATION
     Route: 062

REACTIONS (6)
  - Hypertension [Unknown]
  - Chest discomfort [Unknown]
  - Fatigue [Unknown]
  - Dry mouth [Unknown]
  - Muscle spasms [Unknown]
  - Poor quality sleep [Unknown]
